FAERS Safety Report 9206862 (Version 3)
Quarter: 2019Q4

REPORT INFORMATION
  Report Type: Spontaneous
  Country: US (occurrence: US)
  Receive Date: 20130403
  Receipt Date: 20191219
  Transmission Date: 20200122
  Serious: Yes (Hospitalization)
  Sender: FDA-Public Use
  Company Number: US-UCBSA-081726

PATIENT
  Age: 60 Year
  Sex: Male
  Weight: 106.03 kg

DRUGS (2)
  1. CIMZIA [Suspect]
     Active Substance: CERTOLIZUMAB PEGOL
     Indication: RHEUMATOID ARTHRITIS
     Dosage: 200 MG, EV 2 WEEKS(QOW)
     Dates: start: 201208, end: 20130315
  2. METHOTREXATE. [Concomitant]
     Active Substance: METHOTREXATE
     Dosage: 8QWK
     Dates: start: 200408, end: 2013

REACTIONS (3)
  - Immunodeficiency [Unknown]
  - Drug ineffective [Recovered/Resolved]
  - Staphylococcal infection [Recovered/Resolved]

NARRATIVE: CASE EVENT DATE: 20130211
